FAERS Safety Report 9904930 (Version 1)
Quarter: 2014Q1

REPORT INFORMATION
  Report Type: Spontaneous
  Country: US (occurrence: None)
  Receive Date: 20140212
  Receipt Date: 20140212
  Transmission Date: 20141002
  Serious: Yes (Life-Threatening, Hospitalization, Other)
  Sender: FDA-Public Use
  Company Number: None

PATIENT
  Age: 53 Year
  Sex: Female
  Weight: 60.78 kg

DRUGS (4)
  1. XELJANZ [Suspect]
     Indication: RHEUMATOID ARTHRITIS
     Route: 048
     Dates: start: 201305, end: 20130701
  2. LAMICTAL [Concomitant]
  3. CENTRUM VITAMINS [Concomitant]
  4. METHODEXTRAITE [Concomitant]

REACTIONS (23)
  - Feeling cold [None]
  - Pain [None]
  - Headache [None]
  - Influenza like illness [None]
  - Lethargy [None]
  - Malaise [None]
  - Somnolence [None]
  - Asthenia [None]
  - Amnesia [None]
  - Renal failure acute [None]
  - Hypotension [None]
  - Lumbar puncture abnormal [None]
  - Hepatic failure [None]
  - Pyrexia [None]
  - Tachycardia [None]
  - Respiration abnormal [None]
  - Anaemia [None]
  - Septic shock [None]
  - Meningitis bacterial [None]
  - Unresponsive to stimuli [None]
  - Lyme disease [None]
  - Rash generalised [None]
  - Nausea [None]
